FAERS Safety Report 8822382 (Version 2)
Quarter: 2012Q4

REPORT INFORMATION
  Report Type: 
  Country: US (occurrence: US)
  Receive Date: 20121003
  Receipt Date: 20121224
  Transmission Date: 20130627
  Serious: Yes (Hospitalization, Other)
  Sender: FDA-Public Use
  Company Number: PHEH2012US019057

PATIENT
  Age: 92 None
  Sex: Male

DRUGS (2)
  1. EXJADE [Suspect]
     Indication: ANAEMIA
     Dosage: 1500 mg, daily
     Route: 048
     Dates: start: 20120621, end: 201207
  2. EXJADE [Suspect]
     Indication: HAEMOSIDEROSIS

REACTIONS (5)
  - Overdose [Unknown]
  - Haemoptysis [Recovered/Resolved]
  - Pneumonia [Recovered/Resolved]
  - Hepatic enzyme increased [Unknown]
  - Chest pain [Unknown]
